FAERS Safety Report 6424471-4 (Version None)
Quarter: 2009Q4

REPORT INFORMATION
  Report Type: 
  Country: None (occurrence: None)
  Receive Date: 20091103
  Receipt Date: 20091030
  Transmission Date: 20100525
  Serious: Yes (Other)
  Sender: FDA-Public Use
  Company Number: IN-BRISTOL-MYERS SQUIBB COMPANY-14839310

PATIENT
  Age: 79 Year
  Sex: Male

DRUGS (3)
  1. MAXIPIME [Suspect]
     Indication: PNEUMONIA
     Dosage: REDUCED TO 1GM EVERY 8HOURS ON 5TH DAY
     Route: 042
     Dates: start: 20091024, end: 20091030
  2. MAXIPIME [Suspect]
     Indication: ACUTE RESPIRATORY DISTRESS SYNDROME
     Dosage: REDUCED TO 1GM EVERY 8HOURS ON 5TH DAY
     Route: 042
     Dates: start: 20091024, end: 20091030
  3. BRISTOKACIN [Suspect]

REACTIONS (2)
  - ACTIVATED PARTIAL THROMBOPLASTIN TIME PROLONGED [None]
  - HAEMATURIA [None]
